FAERS Safety Report 8382688-6 (Version None)
Quarter: 2012Q2

REPORT INFORMATION
  Report Type: 
  Country: None (occurrence: None)
  Receive Date: 20120524
  Receipt Date: 20120516
  Transmission Date: 20120825
  Serious: Yes (Hospitalization)
  Sender: FDA-Public Use
  Company Number: DE-UCBSA-057637

PATIENT
  Sex: Male
  Weight: 85 kg

DRUGS (2)
  1. METHOTREXATE [Concomitant]
     Indication: RHEUMATOID ARTHRITIS
     Dosage: 15 MG
     Dates: start: 20100201, end: 20120401
  2. CIMZIA [Suspect]
     Route: 058
     Dates: start: 20100301, end: 20120406

REACTIONS (1)
  - ANAEMIA MACROCYTIC [None]
